FAERS Safety Report 5533616-X (Version None)
Quarter: 2007Q4

REPORT INFORMATION
  Report Type: 
  Country: None (occurrence: None)
  Receive Date: 20071129
  Receipt Date: 20071119
  Transmission Date: 20080405
  Serious: Yes (Hospitalization)
  Sender: FDA-Public Use
  Company Number: 2007-05205

PATIENT
  Age: 34 Year
  Sex: Female

DRUGS (2)
  1. CEFUROXIME SODIUM [Suspect]
     Indication: MASTITIS
     Dosage: 500 MG, BID FOR 20 DAYS, ORAL
     Route: 048
     Dates: start: 20070701, end: 20070701
  2. PRENATAL VITAMINS (TOCOPHEROL, NICOTINIC ACID, RETINOL, VITAMIN D NOS, [Concomitant]

REACTIONS (1)
  - SERUM SICKNESS [None]
